FAERS Safety Report 5290006-5 (Version None)
Quarter: 2007Q1

REPORT INFORMATION
  Report Type: 
  Country: None (occurrence: None)
  Receive Date: 20070116
  Receipt Date: 20060828
  Transmission Date: 20070707
  Serious: Yes (Other)
  Sender: FDA-Public Use
  Company Number: HQWYE368104JAN05

PATIENT
  Age: 56 Year
  Sex: Female

DRUGS (1)
  1. PREMPRO [Suspect]
     Indication: MENOPAUSAL SYMPTOMS
     Dosage: UNSPECIFIED; ORAL
     Route: 048
     Dates: start: 19940101, end: 20020401

REACTIONS (1)
  - BREAST CANCER [None]
